FAERS Safety Report 8107318-X (Version None)
Quarter: 2012Q1

REPORT INFORMATION
  Report Type: 
  Country: None (occurrence: None)
  Receive Date: 20120202
  Receipt Date: 20120126
  Transmission Date: 20120608
  Serious: Yes (Other)
  Sender: FDA-Public Use
  Company Number: BR-PFIZER INC-2012022603

PATIENT
  Age: 69 Year
  Sex: Female

DRUGS (2)
  1. AZOPT [Concomitant]
     Indication: GLAUCOMA
     Dosage: UNK
     Dates: start: 20100101
  2. XALATAN [Suspect]
     Indication: GLAUCOMA
     Dosage: 2 GTT IN EACH EYE, 2X/DAY (6UG)
     Route: 047
     Dates: start: 20100101, end: 20111226

REACTIONS (4)
  - HYPERSENSITIVITY [None]
  - CATARACT [None]
  - OCULAR HYPERAEMIA [None]
  - EYE IRRITATION [None]
